FAERS Safety Report 23358945 (Version 1)
Quarter: 2024Q1

REPORT INFORMATION
  Report Type: Spontaneous
  Country: TW (occurrence: TW)
  Receive Date: 20240102
  Receipt Date: 20240102
  Transmission Date: 20240410
  Serious: Yes (Death)
  Sender: FDA-Public Use
  Company Number: TW-PFIZER INC-PV202300209620

PATIENT

DRUGS (1)
  1. IBRANCE [Suspect]
     Active Substance: PALBOCICLIB
     Dosage: 21 CAPS 3 WEEK
     Route: 048
     Dates: start: 20211001

REACTIONS (1)
  - Death [Fatal]

NARRATIVE: CASE EVENT DATE: 20231225
